FAERS Safety Report 15953076 (Version 1)
Quarter: 2019Q1

REPORT INFORMATION
  Report Type: Report from Study
  Country: None (occurrence: US)
  Receive Date: 20190212
  Receipt Date: 20190212
  Transmission Date: 20190417
  Serious: Yes (Other)
  Sender: FDA-Public Use
  Company Number: US-ABBVIE-19S-163-2660690-00

PATIENT
  Age: 56 Year
  Sex: Male

DRUGS (1)
  1. DUOPA [Suspect]
     Active Substance: CARBIDOPA\LEVODOPA
     Indication: PARKINSON^S DISEASE
     Route: 050
     Dates: start: 20160314, end: 20190201

REACTIONS (3)
  - Embedded device [Recovered/Resolved]
  - Stoma site infection [Unknown]
  - Stoma site odour [Unknown]

NARRATIVE: CASE EVENT DATE: 20190201
